FAERS Safety Report 7690879-2 (Version None)
Quarter: 2011Q3

REPORT INFORMATION
  Report Type: 
  Country: None (occurrence: None)
  Receive Date: 20110818
  Receipt Date: 20110818
  Transmission Date: 20111222
  Serious: Yes (Hospitalization, Other)
  Sender: FDA-Public Use
  Company Number: None

PATIENT
  Age: 45 Year
  Sex: Female
  Weight: 65.77 kg

DRUGS (1)
  1. CHANTIX [Suspect]
     Indication: SMOKING CESSATION THERAPY
     Dosage: 1MG
     Route: 048
     Dates: start: 20110725, end: 20110813

REACTIONS (8)
  - URTICARIA [None]
  - DYSPNOEA [None]
  - BLISTER [None]
  - PRURITUS [None]
  - PALPITATIONS [None]
  - ORAL DISCOMFORT [None]
  - CHEST DISCOMFORT [None]
  - STOMATITIS [None]
